FAERS Safety Report 9633040 (Version 1)
Quarter: 2013Q4

REPORT INFORMATION
  Report Type: Spontaneous
  Country: US (occurrence: US)
  Receive Date: 20131018
  Receipt Date: 20131018
  Transmission Date: 20140711
  Serious: Yes (Hospitalization)
  Sender: FDA-Public Use
  Company Number: US-ABBVIE-13P-163-1158068-00

PATIENT
  Age: 50 Year
  Sex: Male

DRUGS (3)
  1. SYNTHROID [Suspect]
     Indication: PRODUCT USED FOR UNKNOWN INDICATION
  2. TIROSINT [Suspect]
     Indication: HYPOTHYROIDISM
     Dosage: 100 AND 75 MCG (TOTAL DAILY DOSE 175MCG)
     Dates: start: 20130904, end: 20130906
  3. TIROSINT [Suspect]
     Dates: start: 20130909

REACTIONS (7)
  - Hospitalisation [Unknown]
  - Hyperthyroidism [Not Recovered/Not Resolved]
  - Feeling abnormal [Not Recovered/Not Resolved]
  - Abnormal behaviour [Not Recovered/Not Resolved]
  - Palpitations [Not Recovered/Not Resolved]
  - Palpitations [Not Recovered/Not Resolved]
  - Anxiety [Not Recovered/Not Resolved]
